FAERS Safety Report 24254305 (Version 2)
Quarter: 2024Q3

REPORT INFORMATION
  Report Type: Report from Study
  Country: US (occurrence: US)
  Receive Date: 20240827
  Receipt Date: 20240925
  Transmission Date: 20241017
  Serious: Yes (Death, Hospitalization, Other)
  Sender: SUNOVION
  Company Number: US-SUMITOMO PHARMA SWITZERLAND GMBH-2024SPA001377

PATIENT

DRUGS (2)
  1. ORGOVYX [Suspect]
     Active Substance: RELUGOLIX
     Indication: Prostate cancer
     Dosage: 120 MG, QD
     Route: 048
     Dates: start: 20210313
  2. LYNPARZA [Concomitant]
     Active Substance: OLAPARIB
     Dosage: UNK
     Route: 065

REACTIONS (3)
  - Death [Fatal]
  - Cardiac disorder [Unknown]
  - Incorrect dose administered [Unknown]
